FAERS Safety Report 14174077 (Version 3)
Quarter: 2017Q4

REPORT INFORMATION
  Report Type: Report from Study
  Country: US (occurrence: US)
  Receive Date: 20171109
  Receipt Date: 20171212
  Transmission Date: 20180321
  Serious: Yes (Hospitalization)
  Sender: FDA-Public Use
  Company Number: US-GILEAD-2017-0303578

PATIENT
  Age: 62 Year
  Sex: Female

DRUGS (5)
  1. ELIQUIS [Concomitant]
     Active Substance: APIXABAN
  2. DILTIAZEM. [Concomitant]
     Active Substance: DILTIAZEM
  3. AMBRISENTAN [Suspect]
     Active Substance: AMBRISENTAN
     Indication: PRODUCT USED FOR UNKNOWN INDICATION
     Dosage: 10 MG, QD
     Route: 065
     Dates: start: 20170605
  4. TYVASO [Concomitant]
     Active Substance: TREPROSTINIL
  5. ADCIRCA [Concomitant]
     Active Substance: TADALAFIL

REACTIONS (4)
  - Abdominal distension [Unknown]
  - Gastric disorder [Unknown]
  - Oedema [Unknown]
  - Dyspnoea [Unknown]
